FAERS Safety Report 20490876 (Version 1)
Quarter: 2022Q1

REPORT INFORMATION
  Report Type: Spontaneous
  Country: US (occurrence: None)
  Receive Date: 20220218
  Receipt Date: 20220218
  Transmission Date: 20220423
  Serious: Yes (Hospitalization)
  Sender: FDA-Public Use
  Company Number: None

PATIENT
  Sex: Male

DRUGS (11)
  1. TACROLIMUS [Suspect]
     Active Substance: TACROLIMUS
     Indication: Liver transplant
     Dosage: TAKE 3 CAPSULES (3 MG TOTAL) BY MOUTH TWICE DAILY?
     Route: 048
     Dates: start: 20210206
  2. ELIQUIS [Concomitant]
  3. GAVILYTE-G SOL [Concomitant]
  4. LISINOPRIL [Concomitant]
     Active Substance: LISINOPRIL
  5. MYCOPHENOLATE MOFETIL [Concomitant]
     Active Substance: MYCOPHENOLATE MOFETIL
  6. MYCOPHENOLIC ACID [Concomitant]
     Active Substance: MYCOPHENOLIC ACID
  7. MYCOPHENOLATE MOFETIL [Concomitant]
     Active Substance: MYCOPHENOLATE MOFETIL
  8. NORVASC [Concomitant]
     Active Substance: AMLODIPINE BESYLATE
  9. NOVOLOOG [Concomitant]
  10. SILDENAFIL [Concomitant]
     Active Substance: SILDENAFIL
  11. TACROLIMUS [Concomitant]
     Active Substance: TACROLIMUS

REACTIONS (1)
  - Dyspnoea [None]
